FAERS Safety Report 5285689-X (Version None)
Quarter: 2007Q1

REPORT INFORMATION
  Report Type: 
  Country: None (occurrence: None)
  Receive Date: 20070126
  Receipt Date: 20050727
  Transmission Date: 20070707
  Serious: No
  Sender: FDA-Public Use
  Company Number: 2006CT001170

PATIENT
  Age: 79 Year
  Sex: Female
  Weight: 81 kg

DRUGS (9)
  1. VENTAVIS [Suspect]
     Indication: PULMONARY HYPERTENSION
     Dosage: 5 UG;6XD;INH
     Route: 055
     Dates: start: 20050714, end: 20050727
  2. CENTRUM [Concomitant]
  3. SULINDAC [Concomitant]
  4. LASIX [Concomitant]
  5. VASOTEC [Concomitant]
  6. EVISTA [Concomitant]
  7. ZETIA [Concomitant]
  8. SIMVASTATIN [Concomitant]
  9. ASPIRIN [Concomitant]

REACTIONS (3)
  - HEADACHE [None]
  - MALAISE [None]
  - NO THERAPEUTIC RESPONSE [None]
